FAERS Safety Report 8570243-4 (Version None)
Quarter: 2012Q3

REPORT INFORMATION
  Report Type: 
  Country: None (occurrence: None)
  Receive Date: 20120803
  Receipt Date: 20120725
  Transmission Date: 20120928
  Serious: Yes (Other)
  Sender: FDA-Public Use
  Company Number: GB-FRI-1000037556

PATIENT
  Age: 47 Year
  Sex: Female
  Weight: 56.24 kg

DRUGS (3)
  1. CITALOPRAM HYDROBROMIDE [Suspect]
     Route: 048
  2. ACETAMINOPHEN AND CODEINE PHOSPHATE [Concomitant]
  3. PROZAC [Suspect]

REACTIONS (2)
  - BLUNTED AFFECT [None]
  - EMOTIONAL POVERTY [None]
